FAERS Safety Report 7891771-0 (Version None)
Quarter: 2011Q4

REPORT INFORMATION
  Report Type: 
  Country: None (occurrence: None)
  Receive Date: 20111103
  Receipt Date: 20110810
  Transmission Date: 20120403
  Serious: No
  Sender: FDA-Public Use
  Company Number: US-AMGEN-USASP2011040572

PATIENT
  Sex: Female

DRUGS (1)
  1. ENBREL [Suspect]
     Indication: ANKYLOSING SPONDYLITIS
     Dosage: 50 MG, QWK
     Dates: start: 20110530

REACTIONS (8)
  - FATIGUE [None]
  - ASTHENIA [None]
  - HEADACHE [None]
  - NAUSEA [None]
  - FUNGAL INFECTION [None]
  - SINUSITIS [None]
  - EYE PAIN [None]
  - BURNING SENSATION [None]
